FAERS Safety Report 17264985 (Version 2)
Quarter: 2020Q1

REPORT INFORMATION
  Report Type: Report from Study
  Country: US (occurrence: US)
  Receive Date: 20200113
  Receipt Date: 20200127
  Transmission Date: 20200409
  Serious: Yes (Hospitalization)
  Sender: FDA-Public Use
  Company Number: US-ACTELION-A-NJ2020-200515

PATIENT
  Age: 60 Year
  Sex: Male

DRUGS (8)
  1. UPTRAVI [Suspect]
     Active Substance: SELEXIPAG
     Indication: PULMONARY ARTERIAL HYPERTENSION
     Dosage: 600 MCG, BID
     Route: 048
     Dates: start: 20190806, end: 20191203
  2. ASA [Concomitant]
     Active Substance: ASPIRIN
     Dosage: 81 MG, QD
  3. LETAIRIS [Concomitant]
     Active Substance: AMBRISENTAN
     Dosage: 10 MG, QD
  4. XARELTO [Concomitant]
     Active Substance: RIVAROXABAN
  5. COREG [Concomitant]
     Active Substance: CARVEDILOL
     Dosage: UNK MG, BID
  6. LISINOPRIL. [Concomitant]
     Active Substance: LISINOPRIL
     Dosage: 3 MG, QD
  7. SPIRONOLACTON [Concomitant]
     Active Substance: SPIRONOLACTONE
     Dosage: 25 MG, QD
  8. UPTRAVI [Suspect]
     Active Substance: SELEXIPAG
     Dosage: 800 MCG, BID
     Route: 048

REACTIONS (4)
  - Hypotension [Unknown]
  - Dizziness [Unknown]
  - Ulcer haemorrhage [Unknown]
  - Iron deficiency anaemia [Recovered/Resolved]

NARRATIVE: CASE EVENT DATE: 20191203
